FAERS Safety Report 8953007 (Version 4)
Quarter: 2013Q2

REPORT INFORMATION
  Report Type: Spontaneous
  Country: GB (occurrence: GB)
  Receive Date: 20121205
  Receipt Date: 20130528
  Transmission Date: 20140414
  Serious: Yes (Hospitalization)
  Sender: FDA-Public Use
  Company Number: PHFR2012GB006283

PATIENT
  Age: 58 Year
  Sex: Female

DRUGS (5)
  1. TEGRETOL RETARD [Suspect]
     Dosage: 200 MG, BID
     Route: 048
  2. TEGRETOL RETARD [Suspect]
     Dosage: 0.5 DF, BID ((IN THE MORNING AND IN THE EVENING))
     Route: 048
  3. TEGRETOL RETARD [Suspect]
     Dosage: 300 MG, DAILY (100 MG IN THE MORNING, 100 MG AT MID-DAY AND 200 MG IN THE EVENING)
     Route: 048
     Dates: end: 201212
  4. THYROXINE [Concomitant]
     Dosage: 125 UG, DAILY
     Route: 048
     Dates: start: 2002
  5. SUMATRIPTAN [Concomitant]
     Indication: MIGRAINE
     Dosage: 50 MG, DAILY (AS NEEDED)
     Route: 048

REACTIONS (21)
  - Dysuria [Unknown]
  - Glossodynia [Unknown]
  - Oral pain [Unknown]
  - Wrong technique in drug usage process [Unknown]
  - Hearing impaired [Unknown]
  - Decreased appetite [Unknown]
  - Swelling [Unknown]
  - Fluid retention [Unknown]
  - Weight increased [Unknown]
  - Acne [Unknown]
  - Paraesthesia [Unknown]
  - Aggression [Unknown]
  - Dizziness [Unknown]
  - Agitation [Unknown]
  - Restlessness [Unknown]
  - Depression [Unknown]
  - Constipation [Unknown]
  - Diarrhoea [Unknown]
  - Dry mouth [Unknown]
  - Drug ineffective [Unknown]
  - Myalgia [Unknown]
